FAERS Safety Report 23932061 (Version 1)
Quarter: 2024Q2

REPORT INFORMATION
  Report Type: Spontaneous
  Country: US (occurrence: US)
  Receive Date: 20240603
  Receipt Date: 20240603
  Transmission Date: 20240715
  Serious: No
  Sender: FDA-Public Use
  Company Number: US-ELI_LILLY_AND_COMPANY-US202405018308

PATIENT
  Sex: Female

DRUGS (1)
  1. TALTZ [Suspect]
     Active Substance: IXEKIZUMAB
     Indication: Psoriatic arthropathy
     Dosage: 80 MG, UNKNOWN
     Route: 065
     Dates: start: 20231101

REACTIONS (3)
  - Onychomadesis [Not Recovered/Not Resolved]
  - Nail pitting [Not Recovered/Not Resolved]
  - Nail ridging [Not Recovered/Not Resolved]
